FAERS Safety Report 16999912 (Version 2)
Quarter: 2020Q1

REPORT INFORMATION
  Report Type: Spontaneous
  Country: CH (occurrence: CH)
  Receive Date: 20191106
  Receipt Date: 20200109
  Transmission Date: 20200409
  Serious: Yes (Other)
  Sender: FDA-Public Use
  Company Number: NVSC2019CH014940

PATIENT
  Sex: Female

DRUGS (5)
  1. METHOTREXATE. [Suspect]
     Active Substance: METHOTREXATE
     Indication: GLIOBLASTOMA MULTIFORME
     Dosage: UNK UKN
     Route: 065
  2. CARBOPLATIN. [Suspect]
     Active Substance: CARBOPLATIN
     Indication: GLIOBLASTOMA MULTIFORME
     Dosage: UNK UKN
     Route: 065
  3. ETOPOSIDE. [Suspect]
     Active Substance: ETOPOSIDE
     Indication: GLIOBLASTOMA MULTIFORME
     Dosage: UNK UKN
     Route: 065
  4. CYCLOPHOSPHAMIDE. [Suspect]
     Active Substance: CYCLOPHOSPHAMIDE
     Indication: GLIOBLASTOMA MULTIFORME
     Dosage: UNK UKN
     Route: 065
  5. VINCRISTINE [Suspect]
     Active Substance: VINCRISTINE
     Indication: GLIOBLASTOMA MULTIFORME
     Dosage: UNK UKN
     Route: 065

REACTIONS (3)
  - Product use in unapproved indication [Unknown]
  - Glioblastoma multiforme [Unknown]
  - Malignant neoplasm progression [Unknown]
